FAERS Safety Report 19613141 (Version 2)
Quarter: 2021Q3

REPORT INFORMATION
  Report Type: Spontaneous
  Country: US (occurrence: US)
  Receive Date: 20210727
  Receipt Date: 20210809
  Transmission Date: 20211014
  Serious: Yes (Other)
  Sender: FDA-Public Use
  Company Number: US-BAUSCH-BL-2021-025636

PATIENT
  Sex: Female

DRUGS (3)
  1. UCERIS [Suspect]
     Active Substance: BUDESONIDE
     Route: 054
  2. UCERIS [Suspect]
     Active Substance: BUDESONIDE
     Route: 054
  3. UCERIS [Suspect]
     Active Substance: BUDESONIDE
     Indication: AUTOIMMUNE DISORDER
     Route: 054

REACTIONS (4)
  - Drug ineffective [Unknown]
  - Product use complaint [Unknown]
  - Product label issue [Unknown]
  - Incorrect dose administered [Unknown]
